FAERS Safety Report 8335061-0 (Version None)
Quarter: 2012Q2

REPORT INFORMATION
  Report Type: 
  Country: None (occurrence: None)
  Receive Date: 20120503
  Receipt Date: 20120424
  Transmission Date: 20120825
  Serious: Yes (Hospitalization)
  Sender: FDA-Public Use
  Company Number: US-JNJFOC-20120306504

PATIENT
  Sex: Male
  Weight: 17.7 kg

DRUGS (9)
  1. REMICADE [Suspect]
     Indication: INFLAMMATORY BOWEL DISEASE
     Route: 042
     Dates: start: 20100301
  2. METHOTREXATE [Concomitant]
  3. PREDNISONE TAB [Concomitant]
  4. FOLIC ACID [Concomitant]
  5. HUMIRA [Concomitant]
     Dates: start: 20110701
  6. MULTIPLE VITAMIN [Concomitant]
  7. FERROUS SULFATE TAB [Concomitant]
  8. PREVACID [Concomitant]
  9. VITAMIN D [Concomitant]

REACTIONS (1)
  - CHRONIC GRANULOMATOUS DISEASE [None]
